FAERS Safety Report 4455666-7 (Version None)
Quarter: 2004Q3

REPORT INFORMATION
  Report Type: 
  Country: None (occurrence: None)
  Receive Date: 20040917
  Receipt Date: 20040909
  Transmission Date: 20050211
  Serious: Yes (Death)
  Sender: FDA-Public Use
  Company Number: 200410469BFR

PATIENT

DRUGS (1)
  1. MOXIFLOXACIN HYDROCHLORIDE [Suspect]

REACTIONS (1)
  - DEATH [None]
